FAERS Safety Report 5757606-7 (Version None)
Quarter: 2008Q2

REPORT INFORMATION
  Report Type: 
  Country: None (occurrence: None)
  Receive Date: 20080603
  Receipt Date: 20080527
  Transmission Date: 20081010
  Serious: Yes (Life-Threatening)
  Sender: FDA-Public Use
  Company Number: US-ALLERGAN-0805441US

PATIENT
  Sex: Female
  Weight: 42.63 kg

DRUGS (5)
  1. BOTOX [Suspect]
     Indication: CEREBRAL PALSY
     Dosage: UNK, SINGLE
     Route: 030
     Dates: start: 20021201, end: 20021201
  2. BOTOX [Suspect]
     Dosage: 150 UNITS, SINGLE
     Route: 030
     Dates: start: 20070201, end: 20070201
  3. BOTOX [Suspect]
     Dosage: 200 UNITS, SINGLE
     Route: 030
     Dates: start: 20070501, end: 20070501
  4. BOTOX [Suspect]
     Dosage: 155 UNITS, SINGLE
     Route: 030
     Dates: start: 20071003, end: 20071003
  5. MIRALAX [Concomitant]
     Indication: CEREBRAL PALSY
     Dosage: 17 G, QD
     Dates: start: 20010101

REACTIONS (3)
  - DYSPNOEA [None]
  - PAIN [None]
  - PNEUMONIA [None]
